FAERS Safety Report 6336601-3 (Version None)
Quarter: 2009Q3

REPORT INFORMATION
  Report Type: 
  Country: None (occurrence: None)
  Receive Date: 20090901
  Receipt Date: 20090828
  Transmission Date: 20100115
  Serious: Yes (Death)
  Sender: FDA-Public Use
  Company Number: JP-JNJFOC-20090900094

PATIENT
  Sex: Female

DRUGS (4)
  1. RISPERDAL [Suspect]
     Route: 048
  2. RISPERDAL [Suspect]
     Route: 048
  3. RISPERDAL [Suspect]
     Route: 048
  4. RISPERDAL [Suspect]
     Indication: RESTLESSNESS
     Dosage: 6 TO 7 YEARS AGO
     Route: 048

REACTIONS (5)
  - AKINESIA [None]
  - APHONIA [None]
  - DEATH [None]
  - SLEEP DISORDER [None]
  - UNRESPONSIVE TO STIMULI [None]
